FAERS Safety Report 5032247-8 (Version None)
Quarter: 2006Q2

REPORT INFORMATION
  Report Type: 
  Country: None (occurrence: None)
  Receive Date: 20060619
  Receipt Date: 20060608
  Transmission Date: 20061013
  Serious: Yes (Other)
  Sender: FDA-Public Use
  Company Number: 2006AL001450

PATIENT
  Sex: Female

DRUGS (1)
  1. TRIPLE ANTIBIOTIC OINTMENT (BACITRACIN-NEOMYCIN-POLYMYXIN B) (ALPHARMA [Suspect]
     Indication: INFECTION
     Dosage: TOP
     Route: 061
     Dates: start: 20060301

REACTIONS (3)
  - CONDITION AGGRAVATED [None]
  - INFECTION [None]
  - LOCALISED INFECTION [None]
